FAERS Safety Report 24977758 (Version 1)
Quarter: 2025Q1

REPORT INFORMATION
  Report Type: Spontaneous
  Country: US (occurrence: US)
  Receive Date: 20250217
  Receipt Date: 20250217
  Transmission Date: 20250408
  Serious: No
  Sender: BIOGEN
  Company Number: US-BIOGEN-2024BI01248202

PATIENT
  Sex: Female

DRUGS (12)
  1. VUMERITY [Suspect]
     Active Substance: DIROXIMEL FUMARATE
     Indication: Multiple sclerosis
     Dosage: STARTING DOSE
     Route: 050
     Dates: start: 20220527
  2. VUMERITY [Suspect]
     Active Substance: DIROXIMEL FUMARATE
     Dosage: MAINTENANCE DOSE
     Route: 050
  3. LAMOTRIGINE [Concomitant]
     Active Substance: LAMOTRIGINE
     Route: 050
  4. SIMVASTATIN [Concomitant]
     Active Substance: SIMVASTATIN
     Route: 050
  5. MEMANTINE HYDROCHLORIDE [Concomitant]
     Active Substance: MEMANTINE HYDROCHLORIDE
     Route: 050
  6. SERTRALINE HYDROCHLORIDE [Concomitant]
     Active Substance: SERTRALINE HYDROCHLORIDE
     Route: 050
  7. CALCIUM [Concomitant]
     Active Substance: CALCIUM
     Route: 050
  8. FISH OIL [Concomitant]
     Active Substance: FISH OIL
     Route: 050
  9. OMEPRAZOLE [Concomitant]
     Active Substance: OMEPRAZOLE
     Route: 050
  10. ASPIRIN [Concomitant]
     Active Substance: ASPIRIN
     Route: 050
  11. HUMALOG [Concomitant]
     Active Substance: INSULIN LISPRO
     Route: 050
  12. TRESIBA [Concomitant]
     Active Substance: INSULIN DEGLUDEC
     Route: 050

REACTIONS (4)
  - Product dose omission issue [Unknown]
  - Headache [Unknown]
  - White blood cell count decreased [Unknown]
  - Lymphopenia [Unknown]
